FAERS Safety Report 11769142 (Version 2)
Quarter: 2016Q1

REPORT INFORMATION
  Report Type: Spontaneous
  Country: US (occurrence: US)
  Receive Date: 20151123
  Receipt Date: 20160120
  Transmission Date: 20160525
  Serious: No
  Sender: FDA-Public Use
  Company Number: GXBR2015US002391

PATIENT
  Sex: Male
  Weight: 70.3 kg

DRUGS (2)
  1. TERAZOSIN HCL CAPSULES [Suspect]
     Active Substance: TERAZOSIN HYDROCHLORIDE
     Indication: BENIGN PROSTATIC HYPERPLASIA
     Dosage: 5 MG, QHS
     Route: 048
     Dates: start: 20151023
  2. LEVOTHYROXINE. [Concomitant]
     Active Substance: LEVOTHYROXINE
     Dosage: UNK DF, UNK

REACTIONS (2)
  - Dysuria [Not Recovered/Not Resolved]
  - Drug ineffective [Not Recovered/Not Resolved]
